FAERS Safety Report 14955509 (Version 6)
Quarter: 2018Q2

REPORT INFORMATION
  Report Type: Report from Study
  Country: JP (occurrence: JP)
  Receive Date: 20180531
  Receipt Date: 20180625
  Transmission Date: 20180711
  Serious: Yes (Hospitalization)
  Sender: FDA-Public Use
  Company Number: JP-ROCHE-2128235

PATIENT
  Age: 74 Year
  Sex: Male
  Weight: 49.8 kg

DRUGS (7)
  1. CEFZON (JAPAN) [Concomitant]
     Indication: URINARY TRACT INFECTION
     Route: 048
     Dates: start: 20180519, end: 20180522
  2. ATEZOLIZUMAB. [Suspect]
     Active Substance: ATEZOLIZUMAB
     Indication: TRANSITIONAL CELL CARCINOMA
     Dosage: ON 08/MAY/2018, HE RECEIVED THE MOST RECENT DOSE OF ATEZOLIZUMAB PRIOR TO EVENT ONSET.
     Route: 042
     Dates: start: 20180508
  3. CALONAL [Concomitant]
     Active Substance: ACETAMINOPHEN
     Indication: URINARY TRACT INFECTION
     Route: 048
     Dates: start: 20180519, end: 20180605
  4. SOLYUGEN F [Concomitant]
     Indication: URINARY TRACT INFECTION
     Route: 042
     Dates: start: 20180522, end: 20180529
  5. ACELIO [Concomitant]
     Active Substance: ACETAMINOPHEN
     Indication: URINARY TRACT INFECTION
     Route: 042
     Dates: start: 20180522, end: 20180531
  6. SODIUM FERROUS CITRATE [Concomitant]
     Active Substance: SODIUM FERROUS CITRATE
     Indication: PROPHYLAXIS
     Route: 048
     Dates: start: 20180222
  7. TAZOPIPE [Concomitant]
     Active Substance: PIPERACILLIN SODIUM\TAZOBACTAM SODIUM
     Indication: URINARY TRACT INFECTION
     Route: 042
     Dates: start: 20180522, end: 20180529

REACTIONS (1)
  - Demyelination [Recovering/Resolving]

NARRATIVE: CASE EVENT DATE: 20180518
